FAERS Safety Report 5957409-4 (Version None)
Quarter: 2008Q4

REPORT INFORMATION
  Report Type: 
  Country: None (occurrence: None)
  Receive Date: 20081118
  Receipt Date: 20081112
  Transmission Date: 20090506
  Serious: Yes (Hospitalization)
  Sender: FDA-Public Use
  Company Number: US-MERCK-0811USA01832

PATIENT
  Sex: Male

DRUGS (5)
  1. ISENTRESS [Suspect]
     Indication: HIV INFECTION
     Route: 048
     Dates: start: 20070823, end: 20080208
  2. ISENTRESS [Suspect]
     Route: 048
     Dates: start: 20080416, end: 20080708
  3. TRUVADA [Concomitant]
     Route: 065
  4. INH-BURGTHAL [Concomitant]
     Route: 065
  5. RIFAMPIN [Concomitant]
     Route: 065

REACTIONS (3)
  - HEADACHE [None]
  - PYREXIA [None]
  - TUBERCULOSIS [None]
